FAERS Safety Report 14111908 (Version 1)
Quarter: 2017Q4

REPORT INFORMATION
  Report Type: Spontaneous
  Country: MA (occurrence: MA)
  Receive Date: 20171020
  Receipt Date: 20171020
  Transmission Date: 20180321
  Serious: Yes (Life-Threatening, Hospitalization, Other)
  Sender: FDA-Public Use
  Company Number: MA-MYLANLABS-2017M1065707

PATIENT
  Age: 31 Year
  Sex: Female

DRUGS (3)
  1. CEFAZOLIN [Concomitant]
     Active Substance: CEFAZOLIN
     Indication: PRODUCT USED FOR UNKNOWN INDICATION
     Dosage: 2G
     Route: 065
  2. FENTANYL. [Concomitant]
     Active Substance: FENTANYL
     Indication: SPINAL ANAESTHESIA
     Dosage: 0.5% FENTANYL 0.5ML (25MCG)
     Route: 050
  3. BUPIVACAINE. [Suspect]
     Active Substance: BUPIVACAINE
     Indication: SPINAL ANAESTHESIA
     Dosage: 0.5% BUPIVACAINE 2.5ML (12.5MG)
     Route: 050

REACTIONS (2)
  - Meningitis aseptic [Recovered/Resolved]
  - Maternal exposure during delivery [Recovered/Resolved]
